FAERS Safety Report 17572046 (Version 1)
Quarter: 2020Q1

REPORT INFORMATION
  Report Type: Report from Study
  Country: NL (occurrence: NL)
  Receive Date: 20200323
  Receipt Date: 20200323
  Transmission Date: 20200409
  Serious: Yes (Other)
  Sender: FDA-Public Use
  Company Number: NL-ROCHE-2566398

PATIENT

DRUGS (2)
  1. BEVACIZUMAB. [Suspect]
     Active Substance: BEVACIZUMAB
     Indication: RETINAL VEIN OCCLUSION
     Dosage: FOR SIX MONTHS (6 INJECTIONS).
     Route: 050
  2. RANIBIZUMAB. [Suspect]
     Active Substance: RANIBIZUMAB
     Indication: RETINAL VEIN OCCLUSION
     Dosage: FOR 6 MONTHS
     Route: 050

REACTIONS (5)
  - Macular hole [Unknown]
  - Angle closure glaucoma [Unknown]
  - Transient ischaemic attack [Unknown]
  - Iridocyclitis [Unknown]
  - Uveitis [Unknown]
